FAERS Safety Report 19944425 (Version 1)
Quarter: 2021Q4

REPORT INFORMATION
  Report Type: 
  Country: US (occurrence: US)
  Receive Date: 20211011
  Receipt Date: 20211011
  Transmission Date: 20220303
  Serious: No
  Sender: FDA-Public Use
  Company Number: US-C B FLEET CO INC-202008-US-002981

PATIENT
  Age: 74 Year
  Sex: Female

DRUGS (1)
  1. MONISTAT 3 COMBINATION PACK 3 OVULE INSERTS [Suspect]
     Active Substance: MICONAZOLE NITRATE
     Indication: Fungal infection
     Dosage: CONSUMER USED ALL THREE DAYS. DOSAGE INFORMATION UNKNOWN.

REACTIONS (2)
  - Vulvovaginal pain [Recovered/Resolved]
  - Product design issue [None]
